FAERS Safety Report 4803721-1 (Version None)
Quarter: 2005Q4

REPORT INFORMATION
  Report Type: 
  Country: None (occurrence: None)
  Receive Date: 20051014
  Receipt Date: 20051006
  Transmission Date: 20060501
  Serious: Yes (Other)
  Sender: FDA-Public Use
  Company Number: 200513443GDS

PATIENT
  Sex: Male
  Weight: 60 kg

DRUGS (11)
  1. FAMOTIDINE [Suspect]
     Indication: PROPHYLAXIS AGAINST GASTROINTESTINAL ULCER
     Dosage: SEE IMAGE
     Route: 042
  2. TICLOPIDINE HCL [Suspect]
     Indication: THROMBOSIS PROPHYLAXIS
     Dosage: 100 MG, TOTAL DAILY
  3. ASPIRIN [Suspect]
     Indication: THROMBOSIS PROPHYLAXIS
     Dosage: 100 MG, TOTAL DAILY, ORAL
     Route: 048
  4. CANDESARTAN [Concomitant]
  5. NICORANDIL [Concomitant]
  6. SPIRONOLACTONE [Concomitant]
  7. CLILOSTAZOL [Concomitant]
  8. CEFATAXIM [Concomitant]
  9. GABEXATE MESILATE [Concomitant]
  10. MEROPENEM [Concomitant]
  11. MINOCYCLINE [Concomitant]

REACTIONS (5)
  - BACTERIAL INFECTION [None]
  - NEUTROPENIA [None]
  - PURPURA [None]
  - THROMBOCYTOPENIA [None]
  - WHITE BLOOD CELL COUNT DECREASED [None]
